FAERS Safety Report 20103101 (Version 1)
Quarter: 2021Q4

REPORT INFORMATION
  Report Type: Spontaneous
  Country: US (occurrence: US)
  Receive Date: 20211123
  Receipt Date: 20211123
  Transmission Date: 20220303
  Serious: No
  Sender: FDA-Public Use
  Company Number: US-REDHILL BIOPHARMA-2021RDH00137

PATIENT
  Sex: Female

DRUGS (1)
  1. TALICIA [Suspect]
     Active Substance: AMOXICILLIN\OMEPRAZOLE MAGNESIUM\RIFABUTIN
     Dosage: UNK
     Dates: start: 20210731

REACTIONS (3)
  - Hypoaesthesia [Unknown]
  - Vasodilatation [Unknown]
  - Headache [Unknown]

NARRATIVE: CASE EVENT DATE: 20210101
